FAERS Safety Report 19471486 (Version 1)
Quarter: 2021Q2

REPORT INFORMATION
  Report Type: Spontaneous
  Country: US (occurrence: US)
  Receive Date: 20210628
  Receipt Date: 20210628
  Transmission Date: 20210717
  Serious: Yes (Hospitalization)
  Sender: FDA-Public Use
  Company Number: None

PATIENT
  Age: 69 Year
  Sex: Male

DRUGS (1)
  1. EVEROLIMUS 5 MG PAR PHARMACEUTICAL [Suspect]
     Active Substance: EVEROLIMUS
     Indication: MALIGNANT URINARY TRACT NEOPLASM
     Route: 048

REACTIONS (2)
  - Hypotension [None]
  - Therapy cessation [None]

NARRATIVE: CASE EVENT DATE: 20210604
